FAERS Safety Report 7934668-X (Version None)
Quarter: 2011Q4

REPORT INFORMATION
  Report Type: 
  Country: None (occurrence: None)
  Receive Date: 20111122
  Receipt Date: 20111116
  Transmission Date: 20120403
  Serious: Yes (Hospitalization, Disabling, Other)
  Sender: FDA-Public Use
  Company Number: US-MERCK-1109USA01510

PATIENT
  Age: 62 Year
  Sex: Female
  Weight: 59 kg

DRUGS (12)
  1. FOSAMAX [Suspect]
     Indication: OSTEOPOROSIS
     Route: 048
     Dates: start: 20000417, end: 20021230
  2. FOSAMAX [Suspect]
     Indication: OSTEOPENIA
     Route: 048
     Dates: start: 20000417, end: 20021230
  3. PREVACID [Concomitant]
     Route: 065
  4. FOSAMAX [Suspect]
     Route: 048
     Dates: start: 20060710, end: 20100611
  5. ACIPHEX [Concomitant]
     Route: 065
     Dates: start: 20010404
  6. FOSAMAX [Suspect]
     Route: 048
     Dates: start: 19991130, end: 20001101
  7. FOSAMAX [Suspect]
     Route: 048
     Dates: start: 19991130, end: 20001101
  8. FOSAMAX PLUS D [Suspect]
     Indication: OSTEOPENIA
     Route: 048
     Dates: start: 20051103
  9. FOSAMAX [Suspect]
     Route: 048
     Dates: start: 20060710, end: 20100611
  10. PREMPRO [Concomitant]
     Route: 065
     Dates: end: 20020730
  11. KEFLEX [Concomitant]
     Route: 065
     Dates: start: 20040204, end: 20040201
  12. AXID [Concomitant]
     Route: 065

REACTIONS (31)
  - CERVICOBRACHIAL SYNDROME [None]
  - CHEST PAIN [None]
  - DYSPNOEA EXERTIONAL [None]
  - ANXIETY [None]
  - FOOT FRACTURE [None]
  - HYPERLIPIDAEMIA [None]
  - SKIN LESION [None]
  - OSTEOARTHRITIS [None]
  - INFLAMMATION [None]
  - HYPOKALAEMIA [None]
  - TIBIA FRACTURE [None]
  - BURSITIS [None]
  - ROTATOR CUFF SYNDROME [None]
  - DIZZINESS [None]
  - ATELECTASIS [None]
  - ABDOMINAL PAIN LOWER [None]
  - STRESS FRACTURE [None]
  - LOW TURNOVER OSTEOPATHY [None]
  - ANAEMIA [None]
  - HYPOTHYROIDISM [None]
  - URINARY TRACT INFECTION [None]
  - UPPER RESPIRATORY TRACT INFECTION [None]
  - FATIGUE [None]
  - FEMUR FRACTURE [None]
  - OSTEOPOROSIS [None]
  - HYPERTENSION [None]
  - PLANTAR FASCIITIS [None]
  - CONSTIPATION [None]
  - IMPAIRED SELF-CARE [None]
  - JOINT INJURY [None]
  - OEDEMA PERIPHERAL [None]
